FAERS Safety Report 16466749 (Version 2)
Quarter: 2019Q2

REPORT INFORMATION
  Report Type: Report from Study
  Country: None (occurrence: US)
  Receive Date: 20190623
  Receipt Date: 20190626
  Transmission Date: 20190711
  Serious: Yes (Hospitalization)
  Sender: FDA-Public Use
  Company Number: US-ABBVIE-19K-163-2823841-00

PATIENT
  Sex: Female

DRUGS (1)
  1. HUMIRA [Suspect]
     Active Substance: ADALIMUMAB
     Indication: RHEUMATOID ARTHRITIS
     Route: 058
     Dates: end: 20190326

REACTIONS (5)
  - Arthralgia [Recovered/Resolved]
  - Malaise [Recovered/Resolved]
  - Hospitalisation [Recovered/Resolved]
  - Gastrooesophageal reflux disease [Recovering/Resolving]
  - Tonsillitis [Unknown]

NARRATIVE: CASE EVENT DATE: 201812
